FAERS Safety Report 11067851 (Version 1)
Quarter: 2015Q2

REPORT INFORMATION
  Report Type: Spontaneous
  Country: US (occurrence: US)
  Receive Date: 20150427
  Receipt Date: 20150427
  Transmission Date: 20150821
  Serious: Yes (Death)
  Sender: FDA-Public Use
  Company Number: US-UNITED THERAPEUTICS-UNT-2015-004634

PATIENT
  Age: 40 Year
  Sex: Female
  Weight: 89.34 kg

DRUGS (2)
  1. WARFARIN [Concomitant]
     Active Substance: WARFARIN
     Indication: PRODUCT USED FOR UNKNOWN INDICATION
  2. REMODULIN [Suspect]
     Active Substance: TREPROSTINIL
     Indication: PULMONARY HYPERTENSION
     Dosage: 0.074 ?G/KG, CONTINUING
     Route: 058
     Dates: start: 20121015

REACTIONS (1)
  - Death [Fatal]

NARRATIVE: CASE EVENT DATE: 20150114
